FAERS Safety Report 15473395 (Version 2)
Quarter: 2018Q4

REPORT INFORMATION
  Report Type: Spontaneous
  Country: US (occurrence: US)
  Receive Date: 20181008
  Receipt Date: 20181120
  Transmission Date: 20190205
  Serious: No
  Sender: FDA-Public Use
  Company Number: US-ASTRAZENECA-2018SF19454

PATIENT
  Age: 23250 Day
  Sex: Male
  Weight: 84.8 kg

DRUGS (1)
  1. BYDUREON BCISE [Suspect]
     Active Substance: EXENATIDE
     Indication: TYPE 2 DIABETES MELLITUS
     Route: 058
     Dates: start: 201808

REACTIONS (5)
  - Injection site haemorrhage [Unknown]
  - Injection site erythema [Unknown]
  - Incorrect dose administered [Unknown]
  - Injection site bruising [Unknown]
  - Device leakage [Unknown]

NARRATIVE: CASE EVENT DATE: 20180916
